FAERS Safety Report 7242792-2 (Version None)
Quarter: 2011Q1

REPORT INFORMATION
  Report Type: 
  Country: None (occurrence: None)
  Receive Date: 20110114
  Receipt Date: 20110104
  Transmission Date: 20110831
  Serious: Yes (Other)
  Sender: FDA-Public Use
  Company Number: FR-1184565

PATIENT
  Age: 75 Year

DRUGS (1)
  1. TRAVATAN [Suspect]
     Indication: GLAUCOMA
     Dosage: OPHTHALMIC
     Route: 047
     Dates: start: 20101001, end: 20101207

REACTIONS (6)
  - CHEST DISCOMFORT [None]
  - BLOOD PRESSURE SYSTOLIC INCREASED [None]
  - CORONARY ARTERY INSUFFICIENCY [None]
  - GAIT DISTURBANCE [None]
  - CHEST PAIN [None]
  - DYSPNOEA EXERTIONAL [None]
